FAERS Safety Report 7539743-X (Version None)
Quarter: 2011Q2

REPORT INFORMATION
  Report Type: 
  Country: None (occurrence: None)
  Receive Date: 20110610
  Receipt Date: 20110531
  Transmission Date: 20111010
  Serious: Yes (Other)
  Sender: FDA-Public Use
  Company Number: PHHY2011US48112

PATIENT
  Sex: Female

DRUGS (7)
  1. TIMOLOL MALEATE [Concomitant]
  2. TRAMADOL HCL [Suspect]
  3. METOPROLOL SUCCINATE [Concomitant]
  4. CALCIUM CARBONATE [Concomitant]
  5. TYLENOL-500 [Concomitant]
  6. RECLAST [Suspect]
     Dosage: 5 MG, UNK
     Route: 042
     Dates: start: 20110216
  7. VITAMIN D [Concomitant]

REACTIONS (15)
  - TREMOR [None]
  - DECREASED APPETITE [None]
  - FEELING ABNORMAL [None]
  - NAUSEA [None]
  - TIBIA FRACTURE [None]
  - EATING DISORDER [None]
  - DIARRHOEA [None]
  - PAIN [None]
  - WEIGHT DECREASED [None]
  - FALL [None]
  - FIBULA FRACTURE [None]
  - VOMITING [None]
  - MALAISE [None]
  - BONE PAIN [None]
  - CONSTIPATION [None]
